FAERS Safety Report 4438663-7 (Version None)
Quarter: 2004Q3

REPORT INFORMATION
  Report Type: 
  Country: None (occurrence: None)
  Receive Date: 20040830
  Receipt Date: 20040830
  Transmission Date: 20050211
  Serious: Yes (Life-Threatening)
  Sender: FDA-Public Use
  Company Number: None

PATIENT
  Sex: Male
  Weight: 117.5 kg

DRUGS (10)
  1. DROTRECOGIN ALFA 20MG LILLY [Suspect]
     Indication: SEPSIS
     Dosage: 24 MCG/KG CONTINUOUS INTRAVENOUS
     Route: 042
     Dates: start: 20030908, end: 20030913
  2. VANCOMYCIN/LINEZOLID [Concomitant]
  3. FLUCONAZOLE/CANCIDAS [Concomitant]
  4. ZOSYN [Concomitant]
  5. PROTONIX [Concomitant]
  6. PROCRIT [Concomitant]
  7. DOPAMINE HCL [Concomitant]
  8. DOBUTAMINE [Concomitant]
  9. NOREPINEPHRINE [Concomitant]
  10. VASOPRESSIN [Concomitant]

REACTIONS (1)
  - HAEMORRHAGE [None]
